FAERS Safety Report 5816867-6 (Version None)
Quarter: 2008Q3

REPORT INFORMATION
  Report Type: 
  Country: None (occurrence: None)
  Receive Date: 20080721
  Receipt Date: 20080711
  Transmission Date: 20090109
  Serious: Yes (Other)
  Sender: FDA-Public Use
  Company Number: GB-MERCK-0506GBR00031

PATIENT
  Age: 26 Year
  Sex: Female

DRUGS (8)
  1. SINGULAIR [Suspect]
     Indication: ASTHMA
     Route: 048
     Dates: start: 20050530
  2. ALBUTEROL [Concomitant]
     Dates: start: 20050530
  3. BUDESONIDE AND FORMOTEROL FUMARATE [Concomitant]
     Dates: start: 20050530
  4. ACETAMINOPHEN AND CODEINE PHOSPHATE [Concomitant]
     Route: 065
     Dates: start: 20050530
  5. FOLIC ACID [Concomitant]
     Route: 065
  6. CEPHRADINE [Concomitant]
     Route: 065
     Dates: start: 20050620
  7. TRAMADOL HYDROCHLORIDE [Concomitant]
     Route: 065
     Dates: start: 20050530
  8. PREDNISOLONE [Concomitant]
     Route: 065
     Dates: start: 20050530

REACTIONS (2)
  - ABORTION SPONTANEOUS [None]
  - DRUG EXPOSURE DURING PREGNANCY [None]
